FAERS Safety Report 7319369-3 (Version None)
Quarter: 2011Q1

REPORT INFORMATION
  Report Type: 
  Country: None (occurrence: None)
  Receive Date: 20110223
  Receipt Date: 20110223
  Transmission Date: 20110831
  Serious: Yes (Life-Threatening, Hospitalization)
  Sender: FDA-Public Use
  Company Number: None

PATIENT
  Sex: Female
  Weight: 90.7194 kg

DRUGS (1)
  1. LOESTRIN 24 FE [Suspect]
     Indication: MENOPAUSAL SYMPTOMS
     Dosage: MINIMAL DOSAGE QAM PO
     Route: 048
     Dates: start: 20100808, end: 20100927

REACTIONS (7)
  - FALL [None]
  - CONTUSION [None]
  - BLOOD PRESSURE DECREASED [None]
  - DEEP VEIN THROMBOSIS [None]
  - LOSS OF CONSCIOUSNESS [None]
  - PULMONARY THROMBOSIS [None]
  - PULMONARY EMBOLISM [None]
